FAERS Safety Report 9197963 (Version 2)
Quarter: 2013Q2

REPORT INFORMATION
  Report Type: Spontaneous
  Country: JP (occurrence: JP)
  Receive Date: 20130328
  Receipt Date: 20130402
  Transmission Date: 20140414
  Serious: Yes (Death, Hospitalization, Other)
  Sender: FDA-Public Use
  Company Number: JP-ROCHE-698586

PATIENT
  Age: 61 Year
  Sex: Male

DRUGS (18)
  1. AVASTIN [Suspect]
     Indication: COLON CANCER METASTATIC
     Dosage: FREQUENCY:1/2 WEEK(S).
     Route: 041
     Dates: start: 20100303, end: 20100330
  2. CAMPTO [Suspect]
     Indication: COLON CANCER METASTATIC
     Dosage: FREQUENCY: 1/2 WEEK.
     Route: 041
     Dates: start: 20100303, end: 20100330
  3. 5-FU [Concomitant]
     Indication: COLON CANCER METASTATIC
     Dosage: FREQUENCY: 1/2 WEEK.
     Route: 040
     Dates: start: 20100303, end: 20100330
  4. 5-FU [Concomitant]
     Dosage: FREQUENCY: 1/2 WEEK
     Route: 041
     Dates: start: 20100303, end: 20100401
  5. LEVOFOLINATE [Concomitant]
     Indication: COLON CANCER METASTATIC
     Dosage: FREQUENCY: 1/2 WEEK.
     Route: 041
     Dates: start: 20100303, end: 20100330
  6. LOXONIN [Concomitant]
     Indication: FLANK PAIN
     Dosage: FREQUENCY: 3/1 DAY
     Route: 048
     Dates: start: 20100131, end: 20100316
  7. KYTRIL [Concomitant]
     Indication: PROPHYLAXIS OF NAUSEA AND VOMITING
     Dosage: FREQUENCY: 1/2 WEEK; DRUG NAME: KYTRIL 3 MG BAG
     Route: 042
     Dates: start: 20100303, end: 20100330
  8. BUSCOPAN [Concomitant]
     Indication: FLANK PAIN
     Dosage: FREQUENCY: 1/2 WEEK.
     Route: 042
     Dates: start: 20100316, end: 20100330
  9. METOCLOPRAMIDE [Concomitant]
     Dosage: FREQUENCY: 1/1 DAY.
     Route: 048
     Dates: start: 20100305, end: 20100310
  10. LAC-B [Concomitant]
     Indication: CONSTIPATION
     Dosage: FREQUENCY: 3/1 DAY.
     Route: 048
  11. DECADRON [Concomitant]
     Dosage: FREQUENCY: 2/1 DAY.
     Route: 048
     Dates: start: 20100316, end: 20100319
  12. DECADRON [Concomitant]
     Dosage: FREQUENCY: 2/1 DAY
     Route: 048
     Dates: start: 20100330, end: 20100404
  13. NABOAL [Concomitant]
     Indication: FLANK PAIN
     Dosage: DRUG NAME: NABOAL SR; FORM: SUSTAINED RELEASE CAPSULE; FREQUENCY: 2/1 DAY.
     Route: 048
     Dates: start: 20100316, end: 20100416
  14. NOVAMIN [Concomitant]
     Dosage: FREQUENCY: 3/1 DAY.
     Route: 048
  15. MAGLAX [Concomitant]
     Dosage: FREQUENCY: 3/1 DAY.
     Route: 048
  16. OXYCONTIN [Concomitant]
     Dosage: FORM: SUSTAINED RELEASE TABLET; FREQUNCY:2/1 DAY.
     Route: 048
  17. ORGOTEIN [Concomitant]
     Dosage: FORM: POWDERED MEDICINE; FREQUENCY: TAKEN AS NEEDED.
     Route: 048
  18. OXINORM (JAPAN) [Concomitant]
     Dosage: SINGLE USE
     Route: 065
     Dates: start: 20100330

REACTIONS (10)
  - Death [Fatal]
  - Peritonitis [Recovered/Resolved]
  - Ileal perforation [Recovered/Resolved]
  - Sepsis [Recovered/Resolved]
  - Nausea [Recovered/Resolved]
  - Constipation [Unknown]
  - Postoperative wound infection [Recovered/Resolved]
  - Diarrhoea [Unknown]
  - Decreased appetite [Unknown]
  - Vomiting [Unknown]
